FAERS Safety Report 8823192 (Version 2)
Quarter: 2012Q4

REPORT INFORMATION
  Report Type: 
  Country: NO (occurrence: NO)
  Receive Date: 20121003
  Receipt Date: 20121004
  Transmission Date: 20130627
  Serious: Yes (Hospitalization)
  Sender: FDA-Public Use
  Company Number: NO-SANOFI-AVENTIS-2012SA069354

PATIENT
  Age: 64 Year
  Sex: Female

DRUGS (5)
  1. SULFASALAZINE [Suspect]
     Indication: SERONEGATIVE RHEUMATOID ARTHRITIS
     Route: 065
     Dates: start: 1993, end: 2005
  2. METHOTREXATE [Suspect]
     Indication: SERONEGATIVE RHEUMATOID ARTHRITIS
     Route: 065
     Dates: start: 2005
  3. LEFLUNOMIDE [Suspect]
     Indication: SERONEGATIVE RHEUMATOID ARTHRITIS
     Dosage: 20mg
     Route: 065
  4. ADALIMUMAB [Suspect]
     Indication: SERONEGATIVE RHEUMATOID ARTHRITIS
     Route: 065
  5. ABATACEPT [Suspect]
     Indication: SERONEGATIVE RHEUMATOID ARTHRITIS
     Route: 041

REACTIONS (6)
  - Infection [Unknown]
  - Pneumonia [Unknown]
  - Osteomyelitis [Unknown]
  - Necrotising fasciitis streptococcal [Unknown]
  - Synovitis [Unknown]
  - Urosepsis [Unknown]
